FAERS Safety Report 8922182 (Version 3)
Quarter: 2012Q4

REPORT INFORMATION
  Report Type: 
  Country: IT (occurrence: IT)
  Receive Date: 20121123
  Receipt Date: 20121226
  Transmission Date: 20130627
  Serious: Yes (Hospitalization, Other)
  Sender: FDA-Public Use
  Company Number: PHHY2012IT105440

PATIENT
  Age: 51 Year
  Sex: Female

DRUGS (1)
  1. GILENYA [Suspect]
     Indication: RELAPSING-REMITTING MULTIPLE SCLEROSIS
     Dosage: 0.5 mg, QD
     Route: 048
     Dates: start: 20120516, end: 20121024

REACTIONS (5)
  - Angina pectoris [Unknown]
  - Chest pain [Recovering/Resolving]
  - Arteriosclerosis coronary artery [Recovering/Resolving]
  - Emotional distress [Recovering/Resolving]
  - Lymphopenia [Unknown]
